FAERS Safety Report 21922724 (Version 1)
Quarter: 2023Q1

REPORT INFORMATION
  Report Type: Spontaneous
  Country: GB (occurrence: GB)
  Receive Date: 20230128
  Receipt Date: 20230128
  Transmission Date: 20230418
  Serious: Yes (Other)
  Sender: FDA-Public Use
  Company Number: None

PATIENT
  Age: 46 Year
  Sex: Male
  Weight: 86 kg

DRUGS (7)
  1. RAMIPRIL [Suspect]
     Active Substance: RAMIPRIL
     Indication: Product used for unknown indication
     Dates: start: 20211103
  2. AMOXICILLIN [Concomitant]
     Active Substance: AMOXICILLIN
     Dosage: SEVEN DAYS
     Dates: start: 20221207, end: 20221214
  3. ATORVASTATIN [Concomitant]
     Active Substance: ATORVASTATIN
     Indication: Blood cholesterol increased
     Dosage: IN THE EVENING
     Dates: start: 20211215
  4. AMOXICILLIN\CLAVULANATE POTASSIUM [Concomitant]
     Active Substance: AMOXICILLIN\CLAVULANATE POTASSIUM
     Dosage: FOR SEVEN DAYS
     Dates: start: 20221215, end: 20221222
  5. FEXOFENADINE [Concomitant]
     Active Substance: FEXOFENADINE HYDROCHLORIDE
     Dates: start: 20230109
  6. NYSTATIN [Concomitant]
     Active Substance: NYSTATIN
     Dosage: 1 ML FOUR TIMES DAILY. APPLY HALF OF DOSE IN EA
     Dates: start: 20230109, end: 20230116
  7. ALBUTEROL [Concomitant]
     Active Substance: ALBUTEROL
     Route: 055
     Dates: start: 20230105

REACTIONS (4)
  - Swelling face [Recovering/Resolving]
  - Cough [Recovering/Resolving]
  - Chest discomfort [Recovering/Resolving]
  - Wheezing [Recovering/Resolving]
